FAERS Safety Report 4336375-1 (Version None)
Quarter: 2004Q2

REPORT INFORMATION
  Report Type: 
  Country: None (occurrence: None)
  Receive Date: 20040412
  Receipt Date: 20040407
  Transmission Date: 20050107
  Serious: Yes (Death, Hospitalization)
  Sender: FDA-Public Use
  Company Number: PHBS2004SE04634

PATIENT
  Age: 61 Year
  Sex: Male

DRUGS (8)
  1. ZOMETA [Suspect]
     Indication: METASTASES TO BONE
     Route: 042
     Dates: start: 20030915, end: 20031222
  2. QUADRAMET [Suspect]
     Indication: PROSTATE CANCER STAGE IV
     Route: 042
     Dates: start: 20031216, end: 20031216
  3. PREDNISOLONE [Concomitant]
     Dosage: 10 MG
     Route: 048
  4. SELOKEN [Concomitant]
     Dosage: 50 MG
     Route: 048
  5. PRAVACHOL [Concomitant]
     Dosage: 40 MG
     Route: 048
  6. AMARYL [Concomitant]
     Route: 048
  7. CALCICHEW-D3 [Concomitant]
  8. NEXIUM [Concomitant]
     Dosage: 20 MG
     Route: 048

REACTIONS (2)
  - BONE MARROW DISORDER [None]
  - PANCYTOPENIA [None]
